FAERS Safety Report 7295625 (Version 3)
Quarter: 2013Q2

REPORT INFORMATION
  Report Type: Spontaneous
  Country: US (occurrence: US)
  Receive Date: 20100226
  Receipt Date: 20130617
  Transmission Date: 20140414
  Serious: Yes (Other)
  Sender: FDA-Public Use
  Company Number: US-PFIZER INC-2010011013

PATIENT
  Age: 78 Year
  Sex: Male
  Weight: 82.54 kg

DRUGS (3)
  1. LIPITOR [Suspect]
     Indication: BLOOD CHOLESTEROL INCREASED
     Dosage: 40 MG, 1X/DAY
     Route: 048
  2. ACETYLSALICYLIC ACID [Concomitant]
     Dosage: 0.3 G, 2X/WEEK
  3. LEVITRA [Concomitant]
     Dosage: UNK, OCCASSIONALLY

REACTIONS (4)
  - Neuropathy peripheral [Not Recovered/Not Resolved]
  - Muscular weakness [Unknown]
  - Sensory disturbance [Unknown]
  - Gait disturbance [Unknown]
